FAERS Safety Report 24071916 (Version 1)
Quarter: 2024Q3

REPORT INFORMATION
  Report Type: Spontaneous
  Country: TM (occurrence: TM)
  Receive Date: 20240710
  Receipt Date: 20240710
  Transmission Date: 20241017
  Serious: No
  Sender: ROCHE
  Company Number: TM-ROCHE-3552186

PATIENT
  Age: 8 Month
  Sex: Female

DRUGS (1)
  1. EVRYSDI [Suspect]
     Active Substance: RISDIPLAM
     Indication: Spinal muscular atrophy
     Route: 065
     Dates: start: 20231208

REACTIONS (1)
  - Visual impairment [Unknown]
